FAERS Safety Report 7522852-9 (Version None)
Quarter: 2011Q2

REPORT INFORMATION
  Report Type: 
  Country: None (occurrence: None)
  Receive Date: 20110603
  Receipt Date: 20110525
  Transmission Date: 20111010
  Serious: Yes (Hospitalization)
  Sender: FDA-Public Use
  Company Number: US-AMGEN-USASP2011022274

PATIENT
  Age: 59 Year
  Sex: Female

DRUGS (2)
  1. TREXALL [Concomitant]
     Dosage: 4 MG, QWK
     Dates: start: 20101117
  2. ENBREL [Suspect]
     Indication: RHEUMATOID ARTHRITIS
     Dosage: 25 MG, 2 TIMES/WK
     Dates: start: 20090715

REACTIONS (8)
  - CARPAL TUNNEL SYNDROME [None]
  - INJECTION SITE ERYTHEMA [None]
  - NASOPHARYNGITIS [None]
  - RHEUMATOID ARTHRITIS [None]
  - NODULE [None]
  - INJECTION SITE SWELLING [None]
  - SYNOVIAL CYST [None]
  - OSTEOARTHRITIS [None]
